FAERS Safety Report 24934587 (Version 3)
Quarter: 2025Q3

REPORT INFORMATION
  Report Type: Report from Study
  Country: US (occurrence: US)
  Receive Date: 20250206
  Receipt Date: 20250809
  Transmission Date: 20251021
  Serious: Yes (Hospitalization)
  Sender: ALEXION PHARMACEUTICALS
  Company Number: US-AstraZeneca-CH-00798154A

PATIENT
  Sex: Female

DRUGS (1)
  1. ULTOMIRIS [Suspect]
     Active Substance: RAVULIZUMAB-CWVZ
     Route: 065

REACTIONS (7)
  - Dyspnoea [Unknown]
  - Dysphagia [Unknown]
  - Movement disorder [Unknown]
  - Muscular weakness [Not Recovered/Not Resolved]
  - Speech disorder [Unknown]
  - Dysphonia [Unknown]
  - Asthenia [Not Recovered/Not Resolved]
